FAERS Safety Report 23246269 (Version 1)
Quarter: 2023Q4

REPORT INFORMATION
  Report Type: Spontaneous
  Country: PR (occurrence: PR)
  Receive Date: 20231130
  Receipt Date: 20231130
  Transmission Date: 20240110
  Serious: Yes (Other)
  Sender: FDA-Public Use
  Company Number: PR-AMGEN-PRISP2023211258

PATIENT
  Age: 68 Year
  Sex: Male

DRUGS (1)
  1. RITUXIMAB [Suspect]
     Active Substance: RITUXIMAB
     Indication: B-cell lymphoma
     Dosage: UNK
     Route: 065

REACTIONS (3)
  - Cytokine release syndrome [Unknown]
  - Anuria [Unknown]
  - Pancytopenia [Unknown]
